FAERS Safety Report 4450300-4 (Version None)
Quarter: 2004Q3

REPORT INFORMATION
  Report Type: 
  Country: None (occurrence: None)
  Receive Date: 20040915
  Receipt Date: 20040901
  Transmission Date: 20050211
  Serious: Yes (Life-Threatening, Hospitalization)
  Sender: FDA-Public Use
  Company Number: MC200400456

PATIENT
  Age: 50 Year
  Sex: Male

DRUGS (3)
  1. ANGIOMAX [Suspect]
     Dosage: SEE IMAGE
     Route: 040
  2. ACETYLSALICYLIC ACID SRT [Concomitant]
  3. CLOPIDOGREL (CLOPIDOGREL) [Concomitant]

REACTIONS (4)
  - ACUTE MYOCARDIAL INFARCTION [None]
  - CARDIAC FAILURE CONGESTIVE [None]
  - CARDIOGENIC SHOCK [None]
  - TREATMENT NONCOMPLIANCE [None]
